FAERS Safety Report 11756865 (Version 2)
Quarter: 2015Q4

REPORT INFORMATION
  Report Type: Spontaneous
  Country: US (occurrence: US)
  Receive Date: 20151120
  Receipt Date: 20151128
  Transmission Date: 20160304
  Serious: Yes (Other)
  Sender: FDA-Public Use
  Company Number: US-SUN PHARMACEUTICAL INDUSTRIES LTD-2015US-106297

PATIENT
  Age: 19 Year
  Sex: Male

DRUGS (1)
  1. SALBUTAMOL [Suspect]
     Active Substance: ALBUTEROL
     Indication: ASTHMA
     Dosage: CONTINUOUS ALBUTEROL (}17.5MG HAD BEEN GIVEN)
     Route: 065

REACTIONS (2)
  - Lactic acidosis [Recovered/Resolved]
  - Respiratory failure [Recovered/Resolved]
